FAERS Safety Report 19962982 (Version 4)
Quarter: 2022Q1

REPORT INFORMATION
  Report Type: Report from Study
  Country: US (occurrence: US)
  Receive Date: 20211018
  Receipt Date: 20220104
  Transmission Date: 20220423
  Serious: No
  Sender: FDA-Public Use
  Company Number: US-NOVARTISTESTPH-NVSC2021US235578

PATIENT
  Sex: Male

DRUGS (3)
  1. ENTRESTO [Suspect]
     Active Substance: SACUBITRIL\VALSARTAN
     Indication: Product used for unknown indication
     Dosage: 1 DF, BID
     Route: 048
     Dates: start: 202109
  2. ENTRESTO [Suspect]
     Active Substance: SACUBITRIL\VALSARTAN
     Dosage: UNK, BID 24/26 MG
     Route: 048
     Dates: start: 20210901
  3. LASIX [Concomitant]
     Active Substance: FUROSEMIDE
     Indication: Product used for unknown indication
     Dosage: UNK, UNKNOWN
     Route: 065

REACTIONS (12)
  - Throat clearing [Unknown]
  - Fluid intake reduced [Unknown]
  - Weight increased [Recovering/Resolving]
  - Weight decreased [Recovering/Resolving]
  - Dyspnoea [Recovering/Resolving]
  - Blood cholesterol [Recovering/Resolving]
  - Blood glucose [Recovering/Resolving]
  - Fatigue [Recovering/Resolving]
  - Ejection fraction decreased [Unknown]
  - Hypotension [Unknown]
  - Malaise [Recovered/Resolved]
  - Laboratory test normal [Unknown]
